FAERS Safety Report 18649863 (Version 3)
Quarter: 2022Q4

REPORT INFORMATION
  Report Type: Report from Study
  Country: US (occurrence: US)
  Receive Date: 20201222
  Receipt Date: 20221229
  Transmission Date: 20230113
  Serious: No
  Sender: FDA-Public Use
  Company Number: US-PFIZER INC-2019410095

PATIENT
  Age: 81 Year
  Sex: Female
  Weight: 82.5 kg

DRUGS (16)
  1. LYRICA [Suspect]
     Active Substance: PREGABALIN
     Indication: Rheumatoid arthritis
     Dosage: 75 MILLIGRAM, QD
     Route: 048
  2. LYRICA [Suspect]
     Active Substance: PREGABALIN
     Indication: Cervical radiculopathy
     Dosage: 75 MILLIGRAM, BID
     Route: 048
  3. LYRICA [Suspect]
     Active Substance: PREGABALIN
     Indication: Pain
     Dosage: 75 MILLIGRAM, BID VIATRIS PAP
     Route: 048
  4. LEFLUNOMIDE [Concomitant]
     Active Substance: LEFLUNOMIDE
     Indication: Product used for unknown indication
     Dosage: 10 MILLIGRAM, QD (10 MG, 1X/DAY REGIMEN DOSE UNIT: MILLIGRAM)
     Route: 048
  5. LISINOPRIL [Concomitant]
     Active Substance: LISINOPRIL
     Indication: Blood pressure abnormal
     Dosage: 10 MILLIGRAM, QD
     Route: 048
  6. BAYER ASPIRIN [Concomitant]
     Active Substance: ASPIRIN
     Indication: Product used for unknown indication
     Dosage: 325 MILLIGRAM, QD (325 MG, DAILY)
     Route: 048
  7. FOLIC ACID [Concomitant]
     Active Substance: FOLIC ACID
     Indication: Supplementation therapy
     Dosage: 1 MILLIGRAM, QD (1 MG, 1X/DAY REGIMEN DOSE UNIT: MILLIGRAM)
     Route: 048
  8. OXYBUTYNIN [Concomitant]
     Active Substance: OXYBUTYNIN
     Indication: Product used for unknown indication
     Dosage: 10 MILLIGRAM, QD (10 MG, 1X/DAY REGIMEN DOSE UNIT: MILLIGRAM)
     Route: 048
  9. RANITIDINE [Concomitant]
     Active Substance: RANITIDINE
     Indication: Product used for unknown indication
     Dosage: 300 MILLIGRAM, QD (300 MG, 1X/DAY [300MG TABLET ONCE AT BEDTIME BY MOUTH] REGIMEN DOSE UNIT: MILLIGR
     Route: 048
  10. SIMVASTATIN [Concomitant]
     Active Substance: SIMVASTATIN
     Indication: Product used for unknown indication
     Dosage: 40 MILLIGRAM, QD (40MG TABLET, ONE TABLET EVERY NIGHT AT BEDTIME BY MOUTH] REGIMEN DOSE UNIT: MILLIG
     Route: 048
  11. AMITRIPTYLINE [Concomitant]
     Active Substance: AMITRIPTYLINE
     Indication: Product used for unknown indication
     Dosage: 25 MILLIGRAM, QD  (AT NIGHT BY MOUTH) REGIMEN DOSE UNIT: MILLIGRAM)
     Route: 048
  12. ACETAMINOPHEN\HYDROCODONE [Concomitant]
     Active Substance: ACETAMINOPHEN\HYDROCODONE
     Indication: Pain
     Dosage: PRN ( AS NEEDED 5/325 TB (1 OR 2 TABLETS BY MOUTH AS NEEDED FOR PAIN))
     Route: 048
     Dates: start: 20190917, end: 201910
  13. HYDROXYZINE HYDROCHLORIDE [Concomitant]
     Active Substance: HYDROXYZINE HYDROCHLORIDE
     Indication: Anxiety
     Dosage: 20 MILLIGRAM, PRN (10MG TABLETS, 2 TABLETS BY MOUTH EVERY 6 HOURS AS NEEDED FOR ANXIETY, AGITATION O
     Route: 048
     Dates: start: 20190918, end: 201910
  14. HYDROXYZINE HYDROCHLORIDE [Concomitant]
     Active Substance: HYDROXYZINE HYDROCHLORIDE
     Indication: Agitation
  15. HYDROXYZINE HYDROCHLORIDE [Concomitant]
     Active Substance: HYDROXYZINE HYDROCHLORIDE
     Indication: Pain
  16. ECOTRIN [Concomitant]
     Active Substance: ASPIRIN
     Indication: Product used for unknown indication
     Dosage: UNK
     Route: 065

REACTIONS (3)
  - Illness [Unknown]
  - Intentional product misuse [Unknown]
  - Expired product administered [Unknown]

NARRATIVE: CASE EVENT DATE: 20191001
